FAERS Safety Report 12159187 (Version 3)
Quarter: 2016Q2

REPORT INFORMATION
  Report Type: Report from Study
  Country: BR (occurrence: BR)
  Receive Date: 20160308
  Receipt Date: 20160620
  Transmission Date: 20160815
  Serious: Yes (Other)
  Sender: FDA-Public Use
  Company Number: PHHY2012BR105106

PATIENT
  Sex: Female
  Weight: 51 kg

DRUGS (10)
  1. EXJADE [Suspect]
     Active Substance: DEFERASIROX
     Dosage: UNK
     Route: 048
     Dates: end: 20121009
  2. EXJADE [Suspect]
     Active Substance: DEFERASIROX
     Dosage: 20 MG/KG, QD (2 DF OF 500 MG)
     Route: 048
     Dates: start: 201107
  3. EXJADE [Suspect]
     Active Substance: DEFERASIROX
     Dosage: 10 MG/KG, QD (1 DF OF 500 MG)
     Route: 048
     Dates: start: 201208, end: 20120814
  4. EXJADE [Suspect]
     Active Substance: DEFERASIROX
     Dosage: 10 MG/KG (1 DF OF 500 MG), QD
     Route: 048
  5. EXJADE [Suspect]
     Active Substance: DEFERASIROX
     Indication: THALASSAEMIA
     Dosage: 10 MG/KG, QD (1 DF OF 500 MG)
     Route: 048
  6. EXJADE [Suspect]
     Active Substance: DEFERASIROX
     Dosage: UNK
     Route: 048
     Dates: start: 20120110
  7. EXJADE [Suspect]
     Active Substance: DEFERASIROX
     Dosage: UNK
     Route: 048
     Dates: start: 20121128, end: 20121211
  8. EXJADE [Suspect]
     Active Substance: DEFERASIROX
     Dosage: 15 MG/KG, (750MG) QD
     Route: 048
  9. FOLIC ACID. [Concomitant]
     Active Substance: FOLIC ACID
     Indication: THALASSAEMIA
     Dosage: 50 MG, QD
     Route: 048
     Dates: start: 201106
  10. COMPLEX B [Concomitant]
     Active Substance: CALCIUM PANTOTHENATE\CYANOCOBALAMIN\NIACINAMIDE\PYRIDOXINE HYDROCHLORIDE\RIBOFLAVIN\THIAMINE MONONITRATE
     Indication: THALASSAEMIA
     Dosage: UNK
     Route: 048

REACTIONS (8)
  - Gastrointestinal disorder [Recovered/Resolved]
  - Inappropriate schedule of drug administration [Unknown]
  - Blood creatinine increased [Recovered/Resolved]
  - Wrong technique in product usage process [Unknown]
  - Proteinuria [Recovering/Resolving]
  - Diarrhoea [Recovered/Resolved]
  - Nephropathy toxic [Recovering/Resolving]
  - Sideroblastic anaemia [Not Recovered/Not Resolved]
